FAERS Safety Report 5200203-2 (Version None)
Quarter: 2007Q1

REPORT INFORMATION
  Report Type: 
  Country: None (occurrence: None)
  Receive Date: 20070103
  Receipt Date: 20061227
  Transmission Date: 20070707
  Serious: Yes (Hospitalization)
  Sender: FDA-Public Use
  Company Number: 234221

PATIENT
  Age: 74 Year
  Sex: Female

DRUGS (4)
  1. AVASTIN [Suspect]
     Indication: NON-SMALL CELL LUNG CANCER
     Dosage: 15 MG/KG, Q3W, INTRAVENOUS
     Route: 042
     Dates: start: 20060717
  2. ERLOTINIB (ERLOTINIB) TABLET, 100MG [Suspect]
     Indication: NON-SMALL CELL LUNG CANCER
  3. REGLAN [Concomitant]
  4. PROCRIT [Concomitant]

REACTIONS (1)
  - ANAEMIA [None]
